FAERS Safety Report 8151071-0 (Version None)
Quarter: 2012Q1

REPORT INFORMATION
  Report Type: 
  Country: None (occurrence: None)
  Receive Date: 20120220
  Receipt Date: 20120213
  Transmission Date: 20120608
  Serious: Yes (Hospitalization)
  Sender: FDA-Public Use
  Company Number: DE-MERCK-1201DEU00086

PATIENT
  Age: 30 Month
  Sex: Male

DRUGS (4)
  1. SINGULAIR [Suspect]
     Route: 048
     Dates: start: 20120101
  2. ALBUTEROL [Suspect]
     Route: 055
     Dates: start: 20120101
  3. ALBUTEROL [Suspect]
     Route: 055
     Dates: start: 20100101, end: 20120101
  4. SINGULAIR [Suspect]
     Route: 048
     Dates: start: 20100501, end: 20100501

REACTIONS (7)
  - DRUG INTERACTION [None]
  - NIGHTMARE [None]
  - BRONCHITIS [None]
  - MIDDLE INSOMNIA [None]
  - RESTLESSNESS [None]
  - INSOMNIA [None]
  - SLEEP DISORDER [None]
